FAERS Safety Report 6377502-4 (Version None)
Quarter: 2009Q3

REPORT INFORMATION
  Report Type: 
  Country: None (occurrence: None)
  Receive Date: 20090921
  Receipt Date: 20090909
  Transmission Date: 20100115
  Serious: Yes (Other)
  Sender: FDA-Public Use
  Company Number: 2009266569

PATIENT
  Age: 39 Year
  Sex: Male

DRUGS (1)
  1. FRAGMIN [Suspect]
     Indication: THROMBOSIS PROPHYLAXIS

REACTIONS (1)
  - LOSS OF CONSCIOUSNESS [None]
